FAERS Safety Report 10540150 (Version 1)
Quarter: 2014Q4

REPORT INFORMATION
  Report Type: Spontaneous
  Country: GB (occurrence: None)
  Receive Date: 20141022
  Receipt Date: 20141022
  Transmission Date: 20150529
  Serious: Yes (Hospitalization)
  Sender: FDA-Public Use
  Company Number: 2581539

PATIENT
  Age: 29 Year
  Sex: Male
  Weight: 89.65 kg

DRUGS (2)
  1. GENTAMICIN SULFATE. [Suspect]
     Active Substance: GENTAMICIN SULFATE
     Indication: ANTIBIOTIC PROPHYLAXIS
     Route: 042
  2. FLUCLOXACILLIN [Suspect]
     Active Substance: FLUCLOXACILLIN
     Indication: ANTIBIOTIC PROPHYLAXIS
     Dosage: NOT OTHERWISE SPECIFIED
     Route: 042

REACTIONS (2)
  - Hypotension [None]
  - Tachycardia [None]

NARRATIVE: CASE EVENT DATE: 20140922
